FAERS Safety Report 7232039-5 (Version None)
Quarter: 2011Q1

REPORT INFORMATION
  Report Type: 
  Country: None (occurrence: None)
  Receive Date: 20110118
  Receipt Date: 20080815
  Transmission Date: 20110831
  Serious: Yes (Other)
  Sender: FDA-Public Use
  Company Number: PHHY2008NL37317

PATIENT
  Sex: Female

DRUGS (2)
  1. CHEMOTHERAPEUTICS NOS [Concomitant]
  2. SANDOSTATIN LAR [Suspect]
     Dosage: UNK

REACTIONS (2)
  - MALAISE [None]
  - INCORRECT DRUG ADMINISTRATION DURATION [None]
